FAERS Safety Report 9332735 (Version 3)
Quarter: 2013Q4

REPORT INFORMATION
  Report Type: Spontaneous
  Country: US (occurrence: US)
  Receive Date: 20130606
  Receipt Date: 20131111
  Transmission Date: 20140711
  Serious: No
  Sender: FDA-Public Use
  Company Number: US-PFIZER INC-2013171734

PATIENT
  Age: 50 Year
  Sex: Female
  Weight: 104.31 kg

DRUGS (4)
  1. LYRICA [Suspect]
     Indication: FIBROMYALGIA
     Dosage: 75 MG, 2X/DAY
     Route: 048
     Dates: end: 2009
  2. LYRICA [Suspect]
     Indication: RESTLESS LEGS SYNDROME
  3. CELEBREX [Suspect]
     Indication: ARTHRITIS
     Dosage: 200 MG, 1X/DAY
     Route: 048
     Dates: end: 2009
  4. METOPROLOL [Concomitant]
     Indication: HYPERTENSION
     Dosage: UNK

REACTIONS (3)
  - Off label use [Unknown]
  - Weight increased [Unknown]
  - Drug dose omission [Unknown]
